FAERS Safety Report 13446249 (Version 1)
Quarter: 2017Q2

REPORT INFORMATION
  Report Type: Spontaneous
  Country: US (occurrence: US)
  Receive Date: 20170417
  Receipt Date: 20170417
  Transmission Date: 20170830
  Serious: No
  Sender: FDA-Public Use
  Company Number: US-TEVA-758189ACC

PATIENT
  Age: 62 Year
  Sex: Female

DRUGS (13)
  1. NUVIGIL [Concomitant]
     Active Substance: ARMODAFINIL
  2. HYDROCO/APAP [Concomitant]
     Active Substance: ACETAMINOPHEN\HYDROCODONE
  3. MORPHINE [Concomitant]
     Active Substance: MORPHINE
  4. ESZOPICLONE. [Concomitant]
     Active Substance: ESZOPICLONE
  5. ESTRADIOL. [Concomitant]
     Active Substance: ESTRADIOL
  6. COPAXONE [Suspect]
     Active Substance: GLATIRAMER ACETATE
     Indication: MULTIPLE SCLEROSIS
     Route: 058
  7. LISINOPRIL. [Concomitant]
     Active Substance: LISINOPRIL
  8. AMPYRA [Concomitant]
     Active Substance: DALFAMPRIDINE
  9. ROSUVASTATIN. [Concomitant]
     Active Substance: ROSUVASTATIN
  10. METOPROLOL. [Concomitant]
     Active Substance: METOPROLOL
  11. ARMODAFINIL. [Concomitant]
     Active Substance: ARMODAFINIL
  12. OXYBUTYNIN [Concomitant]
     Active Substance: OXYBUTYNIN
  13. DULOXETINE. [Concomitant]
     Active Substance: DULOXETINE

REACTIONS (2)
  - Drug dose omission [Unknown]
  - Gait disturbance [Not Recovered/Not Resolved]

NARRATIVE: CASE EVENT DATE: 20170220
